FAERS Safety Report 25016488 (Version 1)
Quarter: 2025Q1

REPORT INFORMATION
  Report Type: Spontaneous
  Country: US (occurrence: US)
  Receive Date: 20250227
  Receipt Date: 20250227
  Transmission Date: 20250409
  Serious: No
  Sender: APOTEX
  Company Number: US-APOTEX-2025AP002232

PATIENT
  Age: 24 Year
  Sex: Female

DRUGS (3)
  1. MINOXIDIL [Suspect]
     Active Substance: MINOXIDIL
     Indication: Short anagen syndrome
     Route: 061
  2. BIOTIN [Concomitant]
     Active Substance: BIOTIN
     Indication: Short anagen syndrome
     Route: 065
  3. TRIAMCINOLONE [Concomitant]
     Active Substance: TRIAMCINOLONE
     Indication: Short anagen syndrome
     Route: 026

REACTIONS (2)
  - Headache [Recovering/Resolving]
  - Migraine [Recovering/Resolving]
